FAERS Safety Report 9242451 (Version 2)
Quarter: 2017Q3

REPORT INFORMATION
  Report Type: Spontaneous
  Country: CA (occurrence: CA)
  Receive Date: 20130419
  Receipt Date: 20170905
  Transmission Date: 20171128
  Serious: Yes (Hospitalization, Other)
  Sender: FDA-Public Use
  Company Number: CA-PFIZER INC-2013119291

PATIENT
  Age: 71 Year
  Sex: Female

DRUGS (4)
  1. ASAPHEN [Concomitant]
     Active Substance: ASPIRIN
     Dosage: 80 MG, 1X/DAY
     Dates: start: 2008
  2. VERAPAMIL [Concomitant]
     Active Substance: VERAPAMIL HYDROCHLORIDE
     Dosage: 180 MG, UNK
     Dates: start: 20070613, end: 20080626
  3. ISOPTIN - SLOW RELEASE [Concomitant]
     Dosage: 120 MG, 1X/DAY
     Dates: start: 2008
  4. CELEBREX [Suspect]
     Active Substance: CELECOXIB
     Dosage: 200 MG, 1X/DAY
     Dates: start: 2004, end: 2012

REACTIONS (7)
  - Supraventricular extrasystoles [Unknown]
  - Arrhythmia [Unknown]
  - Cardiac arrest [Unknown]
  - Palpitations [Unknown]
  - Ischaemic stroke [Unknown]
  - Syncope [Unknown]
  - Asthma [Unknown]

NARRATIVE: CASE EVENT DATE: 20080601
